FAERS Safety Report 5166008-6 (Version None)
Quarter: 2006Q4

REPORT INFORMATION
  Report Type: 
  Country: None (occurrence: None)
  Receive Date: 20061128
  Receipt Date: 20060925
  Transmission Date: 20070319
  Serious: Yes (Hospitalization, Other)
  Sender: FDA-Public Use
  Company Number: 2006SP002745

PATIENT
  Age: 45 Year
  Sex: Male
  Weight: 71.2147 kg

DRUGS (16)
  1. RIBAVIRIN [Suspect]
     Indication: HEPATITIS C
     Dosage: PO
     Route: 048
     Dates: start: 20050106, end: 20050901
  2. RIBAVIRIN [Suspect]
     Indication: HEPATITIS C
     Dosage: PO
     Route: 048
     Dates: start: 20060208, end: 20060421
  3. PEGASYS [Suspect]
     Dates: start: 20050106, end: 20050901
  4. PEGASYS [Suspect]
     Dates: start: 20060208, end: 20060401
  5. PROCRIT [Suspect]
     Indication: ANAEMIA
     Dosage: 40000 IU; QW; SC
     Route: 058
     Dates: start: 20050301, end: 20050901
  6. PROCRIT [Suspect]
     Indication: ANAEMIA
     Dosage: 40000 IU; QW; SC
     Route: 058
     Dates: start: 20060208, end: 20060428
  7. COUMADIN (CON.) [Concomitant]
  8. FOLIC ACID (CON.) [Concomitant]
  9. LOVASTATIN (CON.) [Concomitant]
  10. DIOVAN [Concomitant]
  11. PRAZOSIN (CON.) [Concomitant]
  12. HYDROCHLOROTHIAZIDE (CON.) [Concomitant]
  13. COREG (CON.) [Concomitant]
  14. REMERON (CON.) [Concomitant]
  15. RISPERDAL (CON.) [Concomitant]
  16. FERROUS SULPHATE (CON.) [Concomitant]

REACTIONS (6)
  - ANAEMIA [None]
  - ANTIPHOSPHOLIPID SYNDROME [None]
  - APLASIA PURE RED CELL [None]
  - CEREBROVASCULAR ACCIDENT [None]
  - HAEMOLYSIS [None]
  - TRANSFUSION REACTION [None]
